FAERS Safety Report 5141032-8 (Version None)
Quarter: 2006Q4

REPORT INFORMATION
  Report Type: 
  Country: None (occurrence: None)
  Receive Date: 20061026
  Receipt Date: 20061016
  Transmission Date: 20070319
  Serious: Yes (Death, Life-Threatening, Other)
  Sender: FDA-Public Use
  Company Number: 2006JP003497

PATIENT
  Age: 55 Year
  Sex: Female
  Weight: 67 kg

DRUGS (4)
  1. PROGRAF [Suspect]
     Indication: LIVER TRANSPLANT
     Dosage: ORAL
     Route: 048
     Dates: start: 20050905, end: 20051003
  2. SOLU-MEDROL [Concomitant]
  3. CYCLOPHOSPHAMIDE [Concomitant]
  4. ALPROSTADIL [Concomitant]

REACTIONS (15)
  - ASCITES [None]
  - CHOLANGITIS SUPPURATIVE [None]
  - CYTOMEGALOVIRUS ANTIGEN POSITIVE [None]
  - HAEMODIALYSIS [None]
  - HAEMOGLOBIN DECREASED [None]
  - HAEMORRHAGIC DIATHESIS [None]
  - HYPOGAMMAGLOBULINAEMIA [None]
  - OXYGEN SATURATION DECREASED [None]
  - PANCYTOPENIA [None]
  - PLATELET COUNT DECREASED [None]
  - RESPIRATORY DISTRESS [None]
  - SEPTIC SHOCK [None]
  - STAPHYLOCOCCAL INFECTION [None]
  - TRANSFUSION REACTION [None]
  - VIRAL INFECTION [None]
